FAERS Safety Report 9414860 (Version 6)
Quarter: 2015Q2

REPORT INFORMATION
  Report Type: Report from Study
  Country: BR (occurrence: BR)
  Receive Date: 20130723
  Receipt Date: 20150602
  Transmission Date: 20150821
  Serious: Yes (Hospitalization, Other)
  Sender: FDA-Public Use
  Company Number: BR-ROCHE-1236094

PATIENT
  Sex: Female
  Weight: 69 kg

DRUGS (17)
  1. LABIRIN [Concomitant]
     Active Substance: BETAHISTINE
     Indication: LABYRINTHITIS
  2. ACTEMRA [Suspect]
     Active Substance: TOCILIZUMAB
     Indication: RHEUMATOID ARTHRITIS
     Route: 042
     Dates: start: 20130101
  3. MABTHERA [Suspect]
     Active Substance: RITUXIMAB
     Route: 042
     Dates: start: 201309
  4. AMLODIPINE BESYLATE. [Concomitant]
     Active Substance: AMLODIPINE BESYLATE
     Indication: HYPERTENSION
  5. METHOTREXATE [Concomitant]
     Active Substance: METHOTREXATE
     Indication: RHEUMATOID ARTHRITIS
     Route: 065
  6. LOSARTAN [Concomitant]
     Active Substance: LOSARTAN
  7. FLUOXETINE [Concomitant]
     Active Substance: FLUOXETINE\FLUOXETINE HYDROCHLORIDE
  8. DICLOFENAC SODIUM. [Concomitant]
     Active Substance: DICLOFENAC SODIUM
  9. RIVOTRIL [Concomitant]
     Active Substance: CLONAZEPAM
     Indication: LABYRINTHITIS
  10. CALCIUM CARBONATE. [Concomitant]
     Active Substance: CALCIUM CARBONATE
     Indication: OSTEOPENIA
  11. PREDNISOLONE. [Concomitant]
     Active Substance: PREDNISOLONE
     Indication: RHEUMATOID ARTHRITIS
  12. RANITIDINE [Concomitant]
     Active Substance: RANITIDINE\RANITIDINE HYDROCHLORIDE
  13. CHLOROQUINE [Concomitant]
     Active Substance: CHLOROQUINE\CHLOROQUINE PHOSPHATE
  14. KETOPROFEN CREME [Concomitant]
  15. ACTEMRA [Suspect]
     Active Substance: TOCILIZUMAB
     Route: 042
     Dates: start: 2010, end: 201308
  16. MABTHERA [Suspect]
     Active Substance: RITUXIMAB
     Indication: RHEUMATOID ARTHRITIS
     Dosage: SUBSEQUENT DOSES ON 15/AUG/2013, 13/FEB/2014, 17/MAR/2014 AND 09/SEP/2014
     Route: 042
     Dates: start: 20130801, end: 20140923
  17. FAMOTIDINE. [Concomitant]
     Active Substance: FAMOTIDINE

REACTIONS (16)
  - Polyarthritis [Unknown]
  - Arthralgia [Not Recovered/Not Resolved]
  - Red blood cell sedimentation rate increased [Unknown]
  - Pain [Not Recovered/Not Resolved]
  - C-reactive protein increased [Unknown]
  - Rheumatoid arthritis [Recovering/Resolving]
  - Cholelithiasis [Unknown]
  - Rheumatoid factor increased [Unknown]
  - Episcleritis [Not Recovered/Not Resolved]
  - Bone pain [Not Recovered/Not Resolved]
  - Leukocytosis [Recovering/Resolving]
  - Ear infection [Recovered/Resolved with Sequelae]
  - Inner ear disorder [Not Recovered/Not Resolved]
  - Therapeutic response decreased [Unknown]
  - Musculoskeletal pain [Not Recovered/Not Resolved]
  - Hearing impaired [Unknown]

NARRATIVE: CASE EVENT DATE: 2014
